FAERS Safety Report 15013169 (Version 3)
Quarter: 2018Q4

REPORT INFORMATION
  Report Type: Spontaneous
  Country: US (occurrence: US)
  Receive Date: 20180614
  Receipt Date: 20181029
  Transmission Date: 20190204
  Serious: Yes (Hospitalization, Other)
  Sender: FDA-Public Use
  Company Number: US-OTSUKA-2018_015322

PATIENT
  Age: 59 Year

DRUGS (1)
  1. ABILIFY [Suspect]
     Active Substance: ARIPIPRAZOLE
     Indication: MAJOR DEPRESSION
     Dosage: 2MG-10MG QD
     Route: 065
     Dates: start: 201308, end: 201605

REACTIONS (10)
  - Disease recurrence [Unknown]
  - Muscle twitching [Unknown]
  - Product dose omission [Unknown]
  - Suicide attempt [Recovered/Resolved]
  - Divorced [Unknown]
  - Inability to afford medication [Unknown]
  - Economic problem [Unknown]
  - Gambling disorder [Recovered/Resolved]
  - Mental disorder [Unknown]
  - Suicidal ideation [Recovered/Resolved]

NARRATIVE: CASE EVENT DATE: 201309
